FAERS Safety Report 4602356-3 (Version None)
Quarter: 2005Q2

REPORT INFORMATION
  Report Type: 
  Country: None (occurrence: None)
  Receive Date: 20050223
  Receipt Date: 20041123
  Transmission Date: 20051028
  Serious: No
  Sender: FDA-Public Use
  Company Number: PHEH2004US11283

PATIENT
  Age: 42 Year
  Sex: Female
  Weight: 73.9 kg

DRUGS (7)
  1. ZELNORM [Suspect]
     Indication: IRRITABLE BOWEL SYNDROME
     Dosage: 6 MG, ORAL
     Route: 048
  2. TRYPTOPHAN, L-(TRYPTOPHAN, L-) [Suspect]
     Indication: SLEEP DISORDER
     Dosage: 300-600MG QHS
     Dates: start: 20040915, end: 20040918
  3. GABITRIL [Suspect]
     Indication: ANXIETY
     Dates: start: 20040901, end: 20040920
  4. PROZAC [Concomitant]
  5. ALTACE [Concomitant]
  6. THYROID TAB [Concomitant]
  7. RITALIN (METHYLPHENIDATE HYDROCHLORIDE) EXTENDED RELEASE CAPSULES [Concomitant]

REACTIONS (6)
  - ABDOMINAL PAIN [None]
  - DIARRHOEA [None]
  - NAUSEA [None]
  - SEROTONIN SYNDROME [None]
  - VIRAL DIARRHOEA [None]
  - VOMITING [None]
